FAERS Safety Report 4422094-X (Version None)
Quarter: 2004Q3

REPORT INFORMATION
  Report Type: 
  Country: None (occurrence: None)
  Receive Date: 20040802
  Receipt Date: 20040716
  Transmission Date: 20050211
  Serious: Yes (Other)
  Sender: FDA-Public Use
  Company Number: 601420

PATIENT
  Age: 52 Year
  Sex: Female

DRUGS (1)
  1. TISSEEL VH KIT [Suspect]
     Indication: SPINAL LAMINECTOMY
     Dosage: 5 ML; ONCE; INTRASPINAL
     Route: 024
     Dates: start: 20040617, end: 20040617

REACTIONS (5)
  - CAUDA EQUINA SYNDROME [None]
  - NERVE ROOT LESION [None]
  - PAIN IN EXTREMITY [None]
  - POST PROCEDURAL COMPLICATION [None]
  - PROCEDURAL SITE REACTION [None]
